FAERS Safety Report 6466816-5 (Version None)
Quarter: 2009Q4

REPORT INFORMATION
  Report Type: 
  Country: None (occurrence: None)
  Receive Date: 20091202
  Receipt Date: 20091117
  Transmission Date: 20100525
  Serious: Yes (Hospitalization, Other)
  Sender: FDA-Public Use
  Company Number: US-ELI_LILLY_AND_COMPANY-US200911004446

PATIENT
  Sex: Female

DRUGS (5)
  1. HUMALOG [Suspect]
     Indication: DIABETES MELLITUS
     Dosage: 1.7 U, OTHER
     Route: 058
     Dates: start: 19980101
  2. HUMALOG [Suspect]
     Dosage: 15 U, OTHER
     Dates: start: 20091116, end: 20091116
  3. HUMALOG [Suspect]
     Dosage: 5 U, 3/D
     Route: 058
     Dates: start: 19980101
  4. NOVOLOG [Concomitant]
  5. CLONAZEPAM [Concomitant]

REACTIONS (9)
  - ANGINA PECTORIS [None]
  - BLOOD GLUCOSE INCREASED [None]
  - CHEST PAIN [None]
  - DIABETIC HYPERGLYCAEMIC COMA [None]
  - DISORIENTATION [None]
  - DRUG INEFFECTIVE [None]
  - POOR QUALITY DRUG ADMINISTERED [None]
  - UNDERDOSE [None]
  - WRONG TECHNIQUE IN DRUG USAGE PROCESS [None]
